FAERS Safety Report 8219340-3 (Version None)
Quarter: 2012Q1

REPORT INFORMATION
  Report Type: 
  Country: None (occurrence: None)
  Receive Date: 20120319
  Receipt Date: 20120309
  Transmission Date: 20120608
  Serious: Yes (Disabling, Other)
  Sender: FDA-Public Use
  Company Number: GB-ASTELLAS-2012US002763

PATIENT
  Sex: Male
  Weight: 79 kg

DRUGS (13)
  1. CANDESARTAN CILEXETIL [Concomitant]
     Indication: HYPERTENSION
     Dosage: UNK
     Route: 065
     Dates: start: 20041001
  2. SORAFENIB [Suspect]
     Indication: HEPATIC NEOPLASM MALIGNANT
     Dosage: 400 MG, UNKNOWN/D
     Route: 048
     Dates: start: 20110107
  3. SENNA [Concomitant]
     Indication: CONSTIPATION
     Dosage: UNK
     Route: 065
     Dates: start: 20101105
  4. ERLOTINIB HYDROCHLORIDE [Suspect]
     Indication: HEPATIC NEOPLASM MALIGNANT
     Dosage: 100 MG, UNKNOWN/D
     Route: 048
     Dates: start: 20110107
  5. METFORMIN HYDROCHLORIDE [Concomitant]
     Indication: DIABETES MELLITUS
     Dosage: UNK
     Route: 065
     Dates: start: 20010701
  6. DOMPERIDONE [Concomitant]
     Indication: NAUSEA
     Dosage: UNK
     Route: 065
     Dates: start: 20101101
  7. DIPROBASE [Concomitant]
     Indication: SKIN DISORDER
     Dosage: UNK
     Route: 065
     Dates: start: 20101224
  8. ONDANSETRON [Concomitant]
     Indication: NAUSEA
     Dosage: UNK
     Route: 065
     Dates: start: 20110801
  9. LACTULOSE [Concomitant]
     Indication: CONSTIPATION
     Dosage: UNK
     Route: 065
     Dates: start: 20110801, end: 20120101
  10. ENOXAPARIN SODIUM [Concomitant]
     Indication: DEEP VEIN THROMBOSIS
     Dosage: UNK
     Route: 065
     Dates: start: 20110101, end: 20120201
  11. TOLBUTAMIDE [Concomitant]
     Indication: DIABETES MELLITUS
     Dosage: UNK
     Route: 065
     Dates: start: 19960901
  12. CHLORAMPHENICOL [Concomitant]
     Indication: EYE INFECTION
     Dosage: UNK
     Route: 065
     Dates: start: 20120101, end: 20120101
  13. RANITIDINE [Concomitant]
     Indication: GASTROOESOPHAGEAL REFLUX DISEASE
     Dosage: UNK
     Route: 065
     Dates: start: 20101001

REACTIONS (7)
  - MACULAR OEDEMA [None]
  - OCULAR VASCULAR DISORDER [None]
  - BLINDNESS UNILATERAL [None]
  - RETINAL HAEMORRHAGE [None]
  - RETINAL VASCULAR OCCLUSION [None]
  - OFF LABEL USE [None]
  - CATARACT [None]
